FAERS Safety Report 8326670-3 (Version None)
Quarter: 2012Q2

REPORT INFORMATION
  Report Type: 
  Country: None (occurrence: None)
  Receive Date: 20120501
  Receipt Date: 20110930
  Transmission Date: 20120825
  Serious: Yes (Hospitalization)
  Sender: FDA-Public Use
  Company Number: US-SANOFI-AVENTIS-2011SA050810

PATIENT
  Age: 58 Year
  Sex: Female
  Weight: 59.42 kg

DRUGS (1)
  1. APIDRA [Suspect]
     Dosage: VIA PUMP
     Route: 058
     Dates: start: 20110101

REACTIONS (2)
  - HYPERGLYCAEMIA [None]
  - MALAISE [None]
